FAERS Safety Report 24625995 (Version 1)
Quarter: 2024Q4

REPORT INFORMATION
  Report Type: Spontaneous
  Country: ES (occurrence: ES)
  Receive Date: 20241115
  Receipt Date: 20241115
  Transmission Date: 20250115
  Serious: Yes (Life-Threatening, Hospitalization, Other)
  Sender: SUNOVION
  Company Number: ES-BIAL-BIAL-17741

PATIENT

DRUGS (3)
  1. ESLICARBAZEPINE ACETATE [Interacting]
     Active Substance: ESLICARBAZEPINE ACETATE
     Indication: Suicide attempt
     Dosage: 2040 MILLIGRAM
     Route: 048
     Dates: start: 20240420, end: 20240420
  2. PREGABALIN [Interacting]
     Active Substance: PREGABALIN
     Indication: Suicide attempt
     Dosage: 1010 MILLIGRAM
     Route: 048
     Dates: start: 20240420, end: 20240420
  3. DIAZEPAM [Interacting]
     Active Substance: DIAZEPAM
     Indication: Suicide attempt
     Dosage: 20 GRAM
     Route: 048
     Dates: start: 20240420, end: 20240420

REACTIONS (3)
  - Coma [Recovered/Resolved]
  - Suicide attempt [Recovered/Resolved]
  - Overdose [Recovered/Resolved]

NARRATIVE: CASE EVENT DATE: 20240420
